FAERS Safety Report 16893883 (Version 1)
Quarter: 2019Q4

REPORT INFORMATION
  Report Type: Spontaneous
  Country: US (occurrence: US)
  Receive Date: 20191008
  Receipt Date: 20191008
  Transmission Date: 20200122
  Serious: Yes (Hospitalization)
  Sender: FDA-Public Use
  Company Number: US-ROCHE-2424507

PATIENT
  Age: 76 Year
  Sex: Male

DRUGS (23)
  1. ARAVA [Concomitant]
     Active Substance: LEFLUNOMIDE
  2. XALATAN [Concomitant]
     Active Substance: LATANOPROST
  3. NORVASC [Concomitant]
     Active Substance: AMLODIPINE BESYLATE
  4. ASPIRIN [ACETYLSALICYLIC ACID] [Concomitant]
     Active Substance: ASPIRIN
  5. GLUCOSAMINE AND CHONDROITIN [Concomitant]
     Active Substance: CHONDROITIN SULFATE (BOVINE)\GLUCOSAMINE HYDROCHLORIDE
  6. COZAAR [Concomitant]
     Active Substance: LOSARTAN POTASSIUM
  7. FLOMAX [Concomitant]
     Active Substance: TAMSULOSIN HYDROCHLORIDE
  8. HUMULIN M3 [Concomitant]
     Active Substance: INSULIN HUMAN
  9. NIZORAL [Concomitant]
     Active Substance: KETOCONAZOLE
  10. LACTOBACILLUS ACIDOPHILUS [Concomitant]
     Active Substance: LACTOBACILLUS ACIDOPHILUS
  11. ACTEMRA [Suspect]
     Active Substance: TOCILIZUMAB
     Indication: RHEUMATOID ARTHRITIS
     Dosage: STRENGTH: 400MG/20ML (20 MG/ML)?DOSE: 4MG/KG IV X1, THEN 8MG/KG IV Q4WEEKS.
     Route: 042
     Dates: start: 20170818, end: 20170818
  12. FLONASE [Concomitant]
     Active Substance: FLUTICASONE PROPIONATE
  13. NEURONTIN [Concomitant]
     Active Substance: GABAPENTIN
  14. ZYLOPRIM [Concomitant]
     Active Substance: ALLOPURINOL
  15. GLUCOTROL [Concomitant]
     Active Substance: GLIPIZIDE
  16. SYNTHROID [Concomitant]
     Active Substance: LEVOTHYROXINE SODIUM
  17. SUPER B COMPLEX WITH C [Concomitant]
  18. ACTEMRA [Suspect]
     Active Substance: TOCILIZUMAB
     Dosage: STRENGTH: 400MG/20ML (20 MG/ML)?DOSE: 4MG/KG IV X1, THEN 6MG/KG IV Q4WEEKS.
     Route: 042
     Dates: end: 20171107
  19. CARDURA [Concomitant]
     Active Substance: DOXAZOSIN MESYLATE
  20. NYDRAZID [Concomitant]
     Active Substance: ISONIAZID
  21. LOPRESSOR [Concomitant]
     Active Substance: METOPROLOL TARTRATE
  22. ELOCON [Concomitant]
     Active Substance: MOMETASONE FUROATE
  23. TIMOPTIC [Concomitant]
     Active Substance: TIMOLOL MALEATE

REACTIONS (1)
  - Acute myocardial infarction [Recovered/Resolved]

NARRATIVE: CASE EVENT DATE: 20171001
